FAERS Safety Report 14712590 (Version 2)
Quarter: 2018Q2

REPORT INFORMATION
  Report Type: Spontaneous
  Country: DE (occurrence: DE)
  Receive Date: 20180404
  Receipt Date: 20180601
  Transmission Date: 20180711
  Serious: Yes (Death, Congenital Anomaly)
  Sender: FDA-Public Use
  Company Number: DE-BIOGEN-2018BI00549120

PATIENT
  Age: 0 Day
  Sex: Male
  Weight: 2.46 kg

DRUGS (1)
  1. TECFIDERA [Suspect]
     Active Substance: DIMETHYL FUMARATE
     Indication: MATERNAL EXPOSURE TIMING UNSPECIFIED
     Dosage: MAINTENANCE DOSE
     Route: 064
     Dates: start: 2014, end: 201708

REACTIONS (7)
  - Congenital eye disorder [Unknown]
  - Foetal exposure during pregnancy [Recovered/Resolved]
  - Hypoplastic left heart syndrome [Unknown]
  - Death neonatal [Fatal]
  - Premature baby [Unknown]
  - Hydrops foetalis [Unknown]
  - Cleft lip and palate [Unknown]

NARRATIVE: CASE EVENT DATE: 20180111
